APPROVED DRUG PRODUCT: TAZIDIME
Active Ingredient: CEFTAZIDIME
Strength: 1GM/VIAL
Dosage Form/Route: INJECTABLE;INJECTION
Application: A062655 | Product #001
Applicant: ELI LILLY AND CO
Approved: Nov 20, 1985 | RLD: No | RS: No | Type: DISCN